FAERS Safety Report 20454515 (Version 1)
Quarter: 2022Q1

REPORT INFORMATION
  Report Type: Spontaneous
  Country: US (occurrence: None)
  Receive Date: 20220209
  Receipt Date: 20220209
  Transmission Date: 20220423
  Serious: No
  Sender: FDA-Public Use
  Company Number: None

PATIENT
  Age: 53 Year
  Sex: Female

DRUGS (1)
  1. HUMIRA [Suspect]
     Active Substance: ADALIMUMAB
     Dosage: OTHER QUANTITY : UNKNOWN;?OTHER FREQUENCY : OTHER;?
     Route: 058

REACTIONS (6)
  - Drug ineffective [None]
  - Fall [None]
  - Pain [None]
  - Weight increased [None]
  - Ligament rupture [None]
  - Tendon rupture [None]

NARRATIVE: CASE EVENT DATE: 20220209
